FAERS Safety Report 6104708-1 (Version None)
Quarter: 2009Q1

REPORT INFORMATION
  Report Type: 
  Country: None (occurrence: None)
  Receive Date: 20090302
  Receipt Date: 20090220
  Transmission Date: 20090719
  Serious: Yes (Death, Other)
  Sender: FDA-Public Use
  Company Number: CLOF-1000446

PATIENT
  Age: 10 Year
  Sex: Female

DRUGS (8)
  1. CLOLAR [Suspect]
     Indication: ACUTE MYELOID LEUKAEMIA
     Dosage: 40 MG/M2, QDX5 DAYS 2-6, INTRAVENOUS : 40 MG/M2, QDX5 DAYS 24-28, INTRAVENOUS
     Route: 042
  2. FLUDARABINE PHOSPHATE [Suspect]
     Indication: ACUTE MYELOID LEUKAEMIA
     Dosage: 30 MG/M2, QDX5 DAYS 1-5, INTRAVENOUS
     Route: 042
  3. CYTARABINE [Suspect]
     Indication: ACUTE MYELOID LEUKAEMIA
     Dosage: SEE IMAGE
     Route: 042
  4. IDARUBICIN HCL [Suspect]
     Indication: ACUTE MYELOID LEUKAEMIA
     Dosage: 12 MG/M2, QDX3 DAYS 1-3, INTRAVENOUS
     Route: 042
  5. GEMTUZUMAB OZOGAMICIN (GEMTUZUMAB OZOGAMICIN) [Suspect]
     Indication: ACUTE MYELOID LEUKAEMIA
     Dosage: 3 G/M2, ONCE DAY 1, INTRAVENOUS
     Route: 042
  6. CYCLOPHOSPHAMIDE [Suspect]
     Indication: ACUTE MYELOID LEUKAEMIA
     Dosage: 1 G/M2, DAYS 4 AND 8, INTRAVENOUS : 300 MG/M2, QDX5 DAYS 24-28, INTRAVENOUS
     Route: 042
  7. BORTEZOMIB (BORTEZOMIB) [Suspect]
     Indication: ACUTE MYELOID LEUKAEMIA
     Dosage: 1.3 MG/M2, DAYS 1, 4, 8 AND 12, INTRAVENOUS
     Route: 042
  8. ETOPOSIDE [Suspect]
     Indication: ACUTE MYELOID LEUKAEMIA
     Dosage: 150 MG/M2, QDX5 DAYS 24-28, INTRAVENOUS
     Route: 042

REACTIONS (4)
  - BONE MARROW TRANSPLANT [None]
  - LEUKAEMIA RECURRENT [None]
  - LEUKAEMIC INFILTRATION EXTRAMEDULLARY [None]
  - MULTI-ORGAN FAILURE [None]
